FAERS Safety Report 4350513-6 (Version None)
Quarter: 2004Q2

REPORT INFORMATION
  Report Type: 
  Country: None (occurrence: None)
  Receive Date: 20040427
  Receipt Date: 20040420
  Transmission Date: 20050107
  Serious: Yes (Other)
  Sender: FDA-Public Use
  Company Number: STA-AE-03-MTX-052

PATIENT
  Age: 78 Year
  Sex: Male

DRUGS (6)
  1. METHOTREXATE [Suspect]
     Indication: RHEUMATOID ARTHRITIS
     Dosage: 15MG, 1X PER 1 WK, ORAL
     Route: 048
     Dates: start: 20020601, end: 20030424
  2. PREDNISONE [Concomitant]
  3. TRENTAL [Concomitant]
  4. LOPRESSOR [Concomitant]
  5. DIGOXIN [Concomitant]
  6. REMERON [Concomitant]

REACTIONS (2)
  - CHEST X-RAY ABNORMAL [None]
  - PNEUMONIA [None]
